FAERS Safety Report 9182193 (Version 1)
Quarter: 2013Q1

REPORT INFORMATION
  Report Type: Spontaneous
  Country: US (occurrence: None)
  Receive Date: 20120622
  Receipt Date: 20120622
  Transmission Date: 20140127
  Serious: Yes (Life-Threatening, Hospitalization)
  Sender: FDA-Public Use
  Company Number: QSC-2012-0078

PATIENT
  Age: 10 Month
  Sex: Female

DRUGS (1)
  1. H.P. ACTHAR GEL (ADRENOCORTICOTROPIC HORMONE) GEL FOR INJECTION, 80U/ML [Suspect]
     Indication: INFANTILE SPASMS
     Route: 058

REACTIONS (1)
  - Pneumonia [None]
